FAERS Safety Report 21690266 (Version 1)
Quarter: 2022Q4

REPORT INFORMATION
  Report Type: Spontaneous
  Country: US (occurrence: US)
  Receive Date: 20221206
  Receipt Date: 20221206
  Transmission Date: 20230113
  Serious: No
  Sender: FDA-Public Use
  Company Number: US-BRAINTREE LABORATORIES, INC.-2022BTE00843

PATIENT
  Age: 71 Year
  Sex: Female
  Weight: 68.027 kg

DRUGS (1)
  1. SUTAB [Suspect]
     Active Substance: MAGNESIUM SULFATE\POTASSIUM CHLORIDE\SODIUM SULFATE
     Indication: Colonoscopy
     Dosage: 1 X 24 TABLETS, 1X
     Route: 048
     Dates: start: 20221004, end: 202210

REACTIONS (3)
  - Fatigue [Recovered/Resolved]
  - Anal incontinence [Recovered/Resolved]
  - Anorectal discomfort [Recovered/Resolved]

NARRATIVE: CASE EVENT DATE: 20221004
